FAERS Safety Report 13798312 (Version 7)
Quarter: 2018Q2

REPORT INFORMATION
  Report Type: Spontaneous
  Country: FI (occurrence: FI)
  Receive Date: 20170727
  Receipt Date: 20180529
  Transmission Date: 20180711
  Serious: Yes (Hospitalization, Other)
  Sender: FDA-Public Use
  Company Number: FI-ROCHE-1969071

PATIENT
  Age: 12 Year
  Sex: Female

DRUGS (9)
  1. XOLAIR [Suspect]
     Active Substance: OMALIZUMAB
     Route: 065
     Dates: start: 20170809
  2. XOLAIR [Suspect]
     Active Substance: OMALIZUMAB
     Dosage: UNK
     Route: 065
  3. XOLAIR [Suspect]
     Active Substance: OMALIZUMAB
     Dosage: UNK (10 TH DOSE)
     Route: 065
     Dates: start: 20170724
  4. XOLAIR [Suspect]
     Active Substance: OMALIZUMAB
     Indication: ASTHMA
     Dosage: EVERY OTHER WEEK
     Route: 065
     Dates: start: 201704, end: 20170719
  5. MONTELUKAST [Concomitant]
     Active Substance: MONTELUKAST SODIUM
     Indication: PRODUCT USED FOR UNKNOWN INDICATION
     Route: 065
  6. SERETIDE [Concomitant]
     Active Substance: FLUTICASONE PROPIONATE\SALMETEROL XINAFOATE
     Indication: PRODUCT USED FOR UNKNOWN INDICATION
     Route: 065
  7. XOLAIR [Suspect]
     Active Substance: OMALIZUMAB
     Dosage: UNK (8 TH DOSE)
     Route: 065
  8. XOLAIR [Suspect]
     Active Substance: OMALIZUMAB
     Dosage: UNK (9 TH DOSE)
     Route: 065
     Dates: start: 20170705
  9. XOLAIR [Suspect]
     Active Substance: OMALIZUMAB
     Dosage: UNK
     Route: 065
     Dates: start: 20180403

REACTIONS (15)
  - Malaise [Recovered/Resolved]
  - Blood immunoglobulin E increased [Unknown]
  - Migraine [Unknown]
  - Vomiting [Unknown]
  - Cough [Unknown]
  - Throat tightness [Recovered/Resolved]
  - Pulmonary pain [Unknown]
  - Sinusitis [Unknown]
  - Dyspnoea [Unknown]
  - Alopecia [Recovered/Resolved]
  - Hypoaesthesia [Recovering/Resolving]
  - Nausea [Unknown]
  - Anaphylactic reaction [Recovered/Resolved]
  - Erythema [Recovered/Resolved]
  - Oropharyngeal pain [Unknown]

NARRATIVE: CASE EVENT DATE: 201707
